FAERS Safety Report 24786189 (Version 1)
Quarter: 2024Q4

REPORT INFORMATION
  Report Type: Spontaneous
  Country: DE (occurrence: DE)
  Receive Date: 20241229
  Receipt Date: 20241229
  Transmission Date: 20250115
  Serious: Yes (Other)
  Sender: SANDOZ
  Company Number: DE-DR. FALK PHARMA GMBH-AZ-044-24

PATIENT
  Age: 74 Year
  Sex: Female

DRUGS (5)
  1. AZATHIOPRINE [Suspect]
     Active Substance: AZATHIOPRINE
     Dosage: 50 MILLIGRAM, BID (1-0-1, 1 AT MORNING AND 1 AT NIGHT)
     Route: 065
     Dates: start: 20200421, end: 20200513
  2. AZATHIOPRINE [Suspect]
     Active Substance: AZATHIOPRINE
     Indication: Dermatomyositis
     Dosage: UNK
     Route: 065
     Dates: start: 2018, end: 2018
  3. METHOTREXATE [Suspect]
     Active Substance: METHOTREXATE
     Indication: Dermatomyositis
     Dosage: 10.000MG
     Route: 058
     Dates: start: 20180712, end: 2018
  4. PREDNISOLONE [Suspect]
     Active Substance: PREDNISOLONE
     Indication: Dermatomyositis
     Dosage: HIGH-DOSE, 1?MG/KG PER OS
     Route: 048
     Dates: start: 2018
  5. PREDNISOLONE [Concomitant]
     Active Substance: PREDNISOLONE
     Indication: Dermatomyositis
     Dosage: 1 UNK, 1MG/KG
     Route: 048

REACTIONS (5)
  - Dermatomyositis [Unknown]
  - Condition aggravated [Unknown]
  - Hepatotoxicity [Unknown]
  - Hepatic enzyme increased [Unknown]
  - Drug ineffective [Unknown]

NARRATIVE: CASE EVENT DATE: 20180101
